FAERS Safety Report 9939621 (Version 1)
Quarter: 2014Q1

REPORT INFORMATION
  Report Type: Report from Study
  Country: US (occurrence: US)
  Receive Date: 20140303
  Receipt Date: 20140303
  Transmission Date: 20141002
  Serious: No
  Sender: FDA-Public Use
  Company Number: US-ABBVIE-13P-163-1032436-00

PATIENT
  Age: 51 Year
  Sex: Female
  Weight: 65.38 kg

DRUGS (18)
  1. HUMIRA [Suspect]
     Indication: RHEUMATOID ARTHRITIS
     Dates: start: 20121120
  2. Z-PACK [Suspect]
     Dates: start: 20120104, end: 20120108
  3. CYSTA Q COMPLEX [Concomitant]
     Indication: CYSTITIS INTERSTITIAL
  4. AMITRIPTYLINE [Concomitant]
     Indication: CYSTITIS INTERSTITIAL
     Dosage: HOUR OF SLEEP
  5. ELMIRON [Concomitant]
     Indication: CYSTITIS INTERSTITIAL
     Dosage: HOUR OF SLEEP
  6. DEPLIN [Concomitant]
     Indication: DEPRESSION
  7. FENTANYL [Concomitant]
     Indication: PAIN
  8. FOCALIN XR [Concomitant]
     Indication: ATTENTION DEFICIT/HYPERACTIVITY DISORDER
  9. L-ARGININE [Concomitant]
     Indication: INFLAMMATION
     Dosage: HOUR OF SLEEP
  10. LIALDA [Concomitant]
     Indication: COLITIS
  11. LORAZEPAM [Concomitant]
     Indication: ANXIETY
  12. FISH OIL [Concomitant]
     Indication: PRODUCT USED FOR UNKNOWN INDICATION
     Dosage: AT HOUR OF SLEEP
  13. VITAMIN D [Concomitant]
     Indication: PRODUCT USED FOR UNKNOWN INDICATION
  14. OMEPRAZOLE [Concomitant]
     Indication: GASTROOESOPHAGEAL REFLUX DISEASE
  15. PREDNISONE [Concomitant]
     Indication: RHEUMATOID ARTHRITIS
  16. DOCUSATE SODIUM [Concomitant]
     Indication: CONSTIPATION PROPHYLAXIS
  17. TRAZODONE [Concomitant]
     Indication: SLEEP DISORDER THERAPY
     Dosage: 1 HOUR OF SLEEP
  18. VENLAFAXINE HCL [Concomitant]
     Indication: DEPRESSION

REACTIONS (15)
  - Device malfunction [Not Recovered/Not Resolved]
  - Bronchitis [Not Recovered/Not Resolved]
  - Asthenia [Not Recovered/Not Resolved]
  - Diarrhoea [Not Recovered/Not Resolved]
  - Oedema peripheral [Not Recovered/Not Resolved]
  - Gait disturbance [Not Recovered/Not Resolved]
  - Influenza like illness [Not Recovered/Not Resolved]
  - Asthenia [Not Recovered/Not Resolved]
  - Malaise [Unknown]
  - Injection site pain [Unknown]
  - Drug ineffective [Unknown]
  - Inappropriate schedule of drug administration [Unknown]
  - Wrong technique in drug usage process [Not Recovered/Not Resolved]
  - Crying [Not Recovered/Not Resolved]
  - Mood altered [Not Recovered/Not Resolved]
